FAERS Safety Report 4496808-7 (Version None)
Quarter: 2004Q4

REPORT INFORMATION
  Report Type: 
  Country: None (occurrence: None)
  Receive Date: 20041109
  Receipt Date: 20041025
  Transmission Date: 20050328
  Serious: Yes (Other)
  Sender: FDA-Public Use
  Company Number: JP-JNJFOC-20041007621

PATIENT
  Sex: Female

DRUGS (4)
  1. DUROTEP [Suspect]
     Route: 062
  2. DUROTEP [Suspect]
     Route: 062
  3. DUROTEP [Suspect]
     Indication: CANCER PAIN
     Route: 062
  4. BROTIZOLAM [Concomitant]
     Route: 049

REACTIONS (3)
  - CONVULSION [None]
  - MUSCLE TWITCHING [None]
  - TREMOR [None]
